FAERS Safety Report 15556654 (Version 6)
Quarter: 2019Q4

REPORT INFORMATION
  Report Type: Spontaneous
  Country: RO (occurrence: RO)
  Receive Date: 20181026
  Receipt Date: 20191122
  Transmission Date: 20200122
  Serious: Yes (Hospitalization, Other)
  Sender: FDA-Public Use
  Company Number: RO-ASTRAZENECA-2018SF35672

PATIENT
  Age: 80 Year
  Sex: Male

DRUGS (91)
  1. RAMIPRIL. [Suspect]
     Active Substance: RAMIPRIL
     Indication: CORONARY ARTERY DISEASE
     Route: 065
     Dates: start: 2016
  2. RAMIPRIL. [Suspect]
     Active Substance: RAMIPRIL
     Indication: CORONARY ARTERY DISEASE
     Route: 065
  3. ROSUVASTATIN. [Suspect]
     Active Substance: ROSUVASTATIN
     Indication: SYNCOPE
     Route: 065
  4. ROSUVASTATIN. [Suspect]
     Active Substance: ROSUVASTATIN
     Indication: SYNCOPE
     Route: 065
  5. ROSUVASTATIN. [Suspect]
     Active Substance: ROSUVASTATIN
     Indication: CORONARY ARTERY DISEASE
     Route: 065
  6. BISOPROLOL [Suspect]
     Active Substance: BISOPROLOL
     Indication: HYPERTENSION
     Route: 065
  7. BISOPROLOL [Suspect]
     Active Substance: BISOPROLOL
     Indication: ACUTE CORONARY SYNDROME
     Route: 065
  8. LECARNIDIPINE [Suspect]
     Active Substance: LERCANIDIPINE
     Indication: HYPERTENSION
     Route: 065
     Dates: start: 2012
  9. RASAGILINE MESYLATE. [Suspect]
     Active Substance: RASAGILINE MESYLATE
     Indication: HYPERTENSION
     Route: 048
     Dates: start: 2017
  10. RIVAROXABAN [Suspect]
     Active Substance: RIVAROXABAN
     Indication: MESENTERIC ARTERY THROMBOSIS
     Route: 065
  11. OMEPRAZOLE. [Concomitant]
     Active Substance: OMEPRAZOLE
     Indication: BLOOD PRESSURE SYSTOLIC
     Route: 005
  12. OMEPRAZOLE. [Concomitant]
     Active Substance: OMEPRAZOLE
     Indication: BLOOD PRESSURE SYSTOLIC
     Route: 005
  13. OMEPRAZOLE. [Concomitant]
     Active Substance: OMEPRAZOLE
     Indication: INTERMITTENT CLAUDICATION
     Route: 005
  14. OMEPRAZOLE. [Concomitant]
     Active Substance: OMEPRAZOLE
     Indication: PRODUCT USED FOR UNKNOWN INDICATION
     Route: 005
  15. CLOPIDOGREL [Concomitant]
     Active Substance: CLOPIDOGREL BISULFATE
     Indication: ACUTE CORONARY SYNDROME
     Route: 065
     Dates: start: 2016
  16. ROSUVASTATIN. [Concomitant]
     Active Substance: ROSUVASTATIN
     Indication: ACUTE CORONARY SYNDROME
     Route: 065
  17. CANDESARTAN CILEXETIL. [Suspect]
     Active Substance: CANDESARTAN CILEXETIL
     Indication: HYPERTENSION
     Route: 065
     Dates: start: 2012
  18. ROSUVASTATIN. [Suspect]
     Active Substance: ROSUVASTATIN
     Indication: CORONARY ARTERY DISEASE
     Route: 065
     Dates: start: 2019
  19. ROSUVASTATIN. [Suspect]
     Active Substance: ROSUVASTATIN
     Indication: DIZZINESS
     Route: 065
  20. BISOPROLOL [Suspect]
     Active Substance: BISOPROLOL
     Indication: HYPERTENSION
     Route: 065
  21. CLOPIDOGREL [Suspect]
     Active Substance: CLOPIDOGREL BISULFATE
     Indication: ACUTE CORONARY SYNDROME
     Route: 005
     Dates: start: 2016
  22. MIDODRINE [Suspect]
     Active Substance: MIDODRINE
     Indication: PRODUCT USED FOR UNKNOWN INDICATION
     Route: 065
  23. OMEPRAZOLE. [Concomitant]
     Active Substance: OMEPRAZOLE
     Indication: PRESYNCOPE
     Route: 005
  24. OMEPRAZOLE. [Concomitant]
     Active Substance: OMEPRAZOLE
     Indication: BLOOD PRESSURE SYSTOLIC
     Route: 005
  25. OMEPRAZOLE. [Concomitant]
     Active Substance: OMEPRAZOLE
     Indication: SYNCOPE
     Route: 005
  26. OMEPRAZOLE. [Concomitant]
     Active Substance: OMEPRAZOLE
     Indication: PRODUCT USED FOR UNKNOWN INDICATION
     Route: 005
  27. OMEPRAZOLE. [Concomitant]
     Active Substance: OMEPRAZOLE
     Indication: INTERMITTENT CLAUDICATION
     Route: 005
  28. OMEPRAZOLE. [Concomitant]
     Active Substance: OMEPRAZOLE
     Indication: BLOOD PRESSURE SYSTOLIC
     Route: 005
  29. ROSUVASTATIN. [Suspect]
     Active Substance: ROSUVASTATIN
     Indication: ACUTE CORONARY SYNDROME
     Route: 065
  30. ROSUVASTATIN. [Suspect]
     Active Substance: ROSUVASTATIN
     Indication: DIZZINESS
     Route: 065
  31. ROSUVASTATIN. [Suspect]
     Active Substance: ROSUVASTATIN
     Indication: HYPERTENSION
     Route: 065
     Dates: start: 2019
  32. ROSUVASTATIN. [Suspect]
     Active Substance: ROSUVASTATIN
     Indication: INTERMITTENT CLAUDICATION
     Route: 065
  33. BISOPROLOL [Suspect]
     Active Substance: BISOPROLOL
     Indication: ACUTE CORONARY SYNDROME
     Route: 065
  34. AMIODARONE [Suspect]
     Active Substance: AMIODARONE
     Indication: PRODUCT USED FOR UNKNOWN INDICATION
     Dosage: UNKNOWN
     Route: 065
     Dates: start: 2016
  35. AMIODARONE [Suspect]
     Active Substance: AMIODARONE
     Indication: PRODUCT USED FOR UNKNOWN INDICATION
     Dosage: UNKNOWN
     Route: 065
  36. CLOPIDOGREL [Suspect]
     Active Substance: CLOPIDOGREL BISULFATE
     Indication: CEREBROVASCULAR DISORDER
     Route: 005
  37. LEVODOPA [Suspect]
     Active Substance: LEVODOPA
     Indication: PARKINSON^S DISEASE
     Route: 065
     Dates: start: 2017
  38. OMEPRAZOLE. [Concomitant]
     Active Substance: OMEPRAZOLE
     Indication: INTERMITTENT CLAUDICATION
     Route: 005
  39. OMEPRAZOLE. [Concomitant]
     Active Substance: OMEPRAZOLE
     Indication: PRESYNCOPE
     Route: 005
  40. ROSUVASTATIN. [Concomitant]
     Active Substance: ROSUVASTATIN
     Indication: ACUTE CORONARY SYNDROME
     Dates: start: 2019
  41. CLOPIDOGREL [Suspect]
     Active Substance: CLOPIDOGREL BISULFATE
     Indication: CEREBROVASCULAR DISORDER
     Route: 005
     Dates: start: 2016
  42. OMEPRAZOLE. [Concomitant]
     Active Substance: OMEPRAZOLE
     Indication: SYNCOPE
     Route: 005
  43. OMEPRAZOLE. [Concomitant]
     Active Substance: OMEPRAZOLE
     Indication: SYNCOPE
     Route: 005
  44. OMEPRAZOLE. [Concomitant]
     Active Substance: OMEPRAZOLE
     Indication: SYNCOPE
     Route: 005
  45. OMEPRAZOLE. [Concomitant]
     Active Substance: OMEPRAZOLE
     Indication: PRESYNCOPE
     Route: 005
  46. OMEPRAZOLE. [Concomitant]
     Active Substance: OMEPRAZOLE
     Indication: BLOOD PRESSURE SYSTOLIC
     Route: 005
  47. RAMIPRIL. [Suspect]
     Active Substance: RAMIPRIL
     Indication: ACUTE CORONARY SYNDROME
     Route: 065
     Dates: start: 2016
  48. ROSUVASTATIN. [Suspect]
     Active Substance: ROSUVASTATIN
     Indication: HYPERTENSION
     Route: 065
  49. ROSUVASTATIN. [Suspect]
     Active Substance: ROSUVASTATIN
     Indication: INTERMITTENT CLAUDICATION
     Route: 065
     Dates: start: 2019
  50. ROSUVASTATIN. [Suspect]
     Active Substance: ROSUVASTATIN
     Indication: PRESYNCOPE
     Route: 065
  51. BISOPROLOL [Suspect]
     Active Substance: BISOPROLOL
     Indication: HYPERTENSION
     Route: 065
     Dates: start: 2016
  52. RIVAROXABAN [Suspect]
     Active Substance: RIVAROXABAN
     Indication: MESENTERIC ARTERY THROMBOSIS
     Route: 065
     Dates: start: 2016
  53. RIVAROXABAN [Suspect]
     Active Substance: RIVAROXABAN
     Indication: ANTICOAGULANT THERAPY
     Route: 065
  54. CLOPIDOGREL [Suspect]
     Active Substance: CLOPIDOGREL BISULFATE
     Indication: ACUTE CORONARY SYNDROME
     Route: 005
  55. OMEPRAZOLE. [Concomitant]
     Active Substance: OMEPRAZOLE
     Indication: DIZZINESS
     Route: 005
  56. ROSUVASTATIN. [Concomitant]
     Active Substance: ROSUVASTATIN
     Indication: HYPERTENSION
     Dates: start: 2019
  57. RAMIPRIL. [Suspect]
     Active Substance: RAMIPRIL
     Indication: ACUTE CORONARY SYNDROME
     Route: 065
  58. ROSUVASTATIN. [Suspect]
     Active Substance: ROSUVASTATIN
     Indication: CORONARY ARTERY DISEASE
     Route: 065
  59. ROSUVASTATIN. [Suspect]
     Active Substance: ROSUVASTATIN
     Indication: PRESYNCOPE
     Route: 065
  60. ROSUVASTATIN. [Suspect]
     Active Substance: ROSUVASTATIN
     Indication: BLOOD PRESSURE SYSTOLIC
     Route: 065
  61. OMEPRAZOLE. [Concomitant]
     Active Substance: OMEPRAZOLE
     Indication: DIZZINESS
     Route: 005
  62. OMEPRAZOLE. [Concomitant]
     Active Substance: OMEPRAZOLE
     Indication: BLOOD PRESSURE SYSTOLIC
     Route: 005
  63. OMEPRAZOLE. [Concomitant]
     Active Substance: OMEPRAZOLE
     Indication: DIZZINESS
     Route: 005
  64. OMEPRAZOLE. [Concomitant]
     Active Substance: OMEPRAZOLE
     Indication: PRODUCT USED FOR UNKNOWN INDICATION
     Route: 005
  65. OMEPRAZOLE. [Concomitant]
     Active Substance: OMEPRAZOLE
     Indication: PRODUCT USED FOR UNKNOWN INDICATION
     Route: 005
  66. OMEPRAZOLE. [Concomitant]
     Active Substance: OMEPRAZOLE
     Indication: SYNCOPE
     Route: 005
  67. OMEPRAZOLE. [Concomitant]
     Active Substance: OMEPRAZOLE
     Indication: PRESYNCOPE
     Route: 005
  68. ROSUVASTATIN. [Suspect]
     Active Substance: ROSUVASTATIN
     Indication: INTERMITTENT CLAUDICATION
     Route: 065
  69. ROSUVASTATIN. [Suspect]
     Active Substance: ROSUVASTATIN
     Indication: ACUTE CORONARY SYNDROME
     Route: 065
     Dates: start: 2019
  70. ROSUVASTATIN. [Suspect]
     Active Substance: ROSUVASTATIN
     Indication: DIZZINESS
     Route: 065
     Dates: start: 2019
  71. ROSUVASTATIN. [Suspect]
     Active Substance: ROSUVASTATIN
     Indication: HYPERTENSION
     Route: 065
  72. ROSUVASTATIN. [Suspect]
     Active Substance: ROSUVASTATIN
     Indication: ACUTE CORONARY SYNDROME
     Route: 065
  73. BISOPROLOL [Suspect]
     Active Substance: BISOPROLOL
     Indication: ACUTE CORONARY SYNDROME
     Route: 065
     Dates: start: 2016
  74. CARBIDOPA. [Suspect]
     Active Substance: CARBIDOPA
     Indication: PARKINSON^S DISEASE
     Dosage: 250 MG/ 25 MG (250 MG/ 25 MG, 1 IN 1 D)
     Route: 005
     Dates: start: 2017
  75. OMEPRAZOLE. [Concomitant]
     Active Substance: OMEPRAZOLE
     Indication: PRODUCT USED FOR UNKNOWN INDICATION
     Route: 005
  76. OMEPRAZOLE. [Concomitant]
     Active Substance: OMEPRAZOLE
     Indication: INTERMITTENT CLAUDICATION
     Route: 005
  77. OMEPRAZOLE. [Concomitant]
     Active Substance: OMEPRAZOLE
     Indication: INTERMITTENT CLAUDICATION
     Route: 005
  78. OMEPRAZOLE. [Concomitant]
     Active Substance: OMEPRAZOLE
     Indication: DIZZINESS
     Route: 005
  79. OMEPRAZOLE. [Concomitant]
     Active Substance: OMEPRAZOLE
     Indication: DIZZINESS
     Route: 005
  80. ROSUVASTATIN. [Suspect]
     Active Substance: ROSUVASTATIN
     Indication: BLOOD PRESSURE SYSTOLIC
     Route: 065
  81. ROSUVASTATIN. [Suspect]
     Active Substance: ROSUVASTATIN
     Indication: SYNCOPE
     Route: 065
     Dates: start: 2019
  82. ROSUVASTATIN. [Suspect]
     Active Substance: ROSUVASTATIN
     Indication: PRESYNCOPE
     Route: 065
     Dates: start: 2019
  83. ROSUVASTATIN. [Suspect]
     Active Substance: ROSUVASTATIN
     Indication: BLOOD PRESSURE SYSTOLIC
     Route: 065
     Dates: start: 2019
  84. RIVAROXABAN [Suspect]
     Active Substance: RIVAROXABAN
     Indication: ANTICOAGULANT THERAPY
     Route: 065
     Dates: start: 2016
  85. OMEPRAZOLE. [Concomitant]
     Active Substance: OMEPRAZOLE
     Indication: PRESYNCOPE
     Route: 005
  86. OMEPRAZOLE. [Concomitant]
     Active Substance: OMEPRAZOLE
     Indication: INTERMITTENT CLAUDICATION
     Route: 005
  87. OMEPRAZOLE. [Concomitant]
     Active Substance: OMEPRAZOLE
     Indication: PRODUCT USED FOR UNKNOWN INDICATION
     Route: 005
  88. OMEPRAZOLE. [Concomitant]
     Active Substance: OMEPRAZOLE
     Indication: PRESYNCOPE
     Route: 005
  89. OMEPRAZOLE. [Concomitant]
     Active Substance: OMEPRAZOLE
     Indication: DIZZINESS
     Route: 005
  90. OMEPRAZOLE. [Concomitant]
     Active Substance: OMEPRAZOLE
     Indication: SYNCOPE
     Route: 005
  91. ROSUVASTATIN. [Concomitant]
     Active Substance: ROSUVASTATIN
     Indication: HYPERTENSION
     Route: 065

REACTIONS (9)
  - Presyncope [Recovered/Resolved]
  - Orthostatic hypertension [Unknown]
  - Abdominal pain [Unknown]
  - Syncope [Recovered/Resolved]
  - Intermittent claudication [Unknown]
  - Dizziness [Recovered/Resolved]
  - Mesenteric artery thrombosis [Unknown]
  - Orthostatic hypotension [Recovered/Resolved]
  - Supine hypertension [Recovering/Resolving]

NARRATIVE: CASE EVENT DATE: 2017
